FAERS Safety Report 9752893 (Version 1)
Quarter: 2013Q4

REPORT INFORMATION
  Report Type: Spontaneous
  Country: US (occurrence: US)
  Receive Date: 20131213
  Receipt Date: 20131213
  Transmission Date: 20140711
  Serious: No
  Sender: FDA-Public Use
  Company Number: US-GLAXOSMITHKLINE-A1009338A

PATIENT
  Age: 80 Year
  Sex: Male

DRUGS (1)
  1. ARZERRA [Suspect]
     Indication: CHRONIC LYMPHOCYTIC LEUKAEMIA
     Dosage: 2G MONTHLY
     Route: 042
     Dates: end: 20130116

REACTIONS (2)
  - Back pain [Recovered/Resolved]
  - Dizziness [Unknown]
